FAERS Safety Report 9305403 (Version 1)
Quarter: 2013Q2

REPORT INFORMATION
  Report Type: Spontaneous
  Country: ES (occurrence: ES)
  Receive Date: 20130523
  Receipt Date: 20130523
  Transmission Date: 20140414
  Serious: Yes (Hospitalization)
  Sender: FDA-Public Use
  Company Number: ES-BRISTOL-MYERS SQUIBB COMPANY-18905539

PATIENT
  Age: 83 Year
  Sex: Female

DRUGS (7)
  1. KARVEZIDE FILM-COATED TABS 300/12.5 MG [Suspect]
     Indication: HYPERTENSION
     Dosage: 1 DF=300 MG/12,5 MG TABLET?LAST DOSE ON 16MAR2013.
     Route: 048
     Dates: start: 201006, end: 20130316
  2. SOMNOVIT [Concomitant]
  3. ADOLONTA [Concomitant]
     Dosage: ADOLONTA RETARD
  4. SIMVASTATIN [Concomitant]
  5. FLATORIL [Concomitant]
  6. OMEPRAZOLE [Concomitant]
  7. EBIXA [Concomitant]

REACTIONS (7)
  - Hyponatraemia [Recovering/Resolving]
  - Vomiting [Unknown]
  - Gastroenteritis viral [Unknown]
  - Laboratory test abnormal [Unknown]
  - Muscle rigidity [None]
  - Somnolence [None]
  - Activities of daily living impaired [None]
